FAERS Safety Report 13422662 (Version 1)
Quarter: 2017Q2

REPORT INFORMATION
  Report Type: Spontaneous
  Country: US (occurrence: US)
  Receive Date: 20170410
  Receipt Date: 20170410
  Transmission Date: 20170830
  Serious: No
  Sender: FDA-Public Use
  Company Number: US-BAYER-2017-058527

PATIENT
  Age: 75 Year
  Sex: Male
  Weight: 104 kg

DRUGS (1)
  1. MIRALAX [Suspect]
     Active Substance: POLYETHYLENE GLYCOL 3350
     Indication: GASTROINTESTINAL DISORDER
     Dosage: 1/2 CAP IN WATER OR CRANBERRY JUICE DOSE
     Route: 048
     Dates: start: 2014, end: 20170327

REACTIONS (3)
  - Product contamination physical [Unknown]
  - Unevaluable event [Unknown]
  - Off label use [Unknown]

NARRATIVE: CASE EVENT DATE: 2015
